FAERS Safety Report 9716833 (Version 3)
Quarter: 2014Q1

REPORT INFORMATION
  Report Type: Spontaneous
  Country: JP (occurrence: JP)
  Receive Date: 20131127
  Receipt Date: 20140314
  Transmission Date: 20141002
  Serious: Yes (Hospitalization)
  Sender: FDA-Public Use
  Company Number: JP-B.I. PHARMACEUTICALS,INC./RIDGEFIELD-2013-BI-39172NB

PATIENT
  Age: 60 Year
  Sex: Male
  Weight: 76 kg

DRUGS (7)
  1. TRAZENTA [Suspect]
     Indication: TYPE 2 DIABETES MELLITUS
     Dosage: 5 MG
     Route: 048
     Dates: start: 20130319, end: 20131112
  2. BASEN / VOGLIBOSE [Concomitant]
     Indication: DIABETES MELLITUS
     Dosage: 0.6 MG
     Route: 048
     Dates: start: 20070704
  3. LIPITOR / ATORVASTATIN CALCIUM HYDRATE [Concomitant]
     Indication: DYSLIPIDAEMIA
     Dosage: 10 MG
     Route: 048
     Dates: start: 20031204
  4. REZALTAS / OLMESARTAN MEDOX OMIL_AZELNIDIPINE COMBINED DRUG [Concomitant]
     Indication: HYPERTENSION
     Route: 048
     Dates: start: 20121225
  5. GLIMEPIRIDE / GLIMEPIRIDE [Concomitant]
     Indication: DIABETES MELLITUS
     Dosage: 0.5 MG
     Route: 048
     Dates: start: 20080118
  6. ETHYL ICOSAPENTATE / ETHYL ICOSAPENTATE [Concomitant]
     Indication: DYSLIPIDAEMIA
     Dosage: 900 MG
     Route: 048
     Dates: start: 20070729
  7. OLMETEC / OLMESARTAN MEDOXOMIL [Concomitant]
     Indication: HYPERTENSION
     Dosage: 20 MG
     Route: 048
     Dates: start: 20061204

REACTIONS (1)
  - Autoimmune pancreatitis [Not Recovered/Not Resolved]
